FAERS Safety Report 8523475-5 (Version None)
Quarter: 2012Q3

REPORT INFORMATION
  Report Type: 
  Country: None (occurrence: None)
  Receive Date: 20120709
  Receipt Date: 20120625
  Transmission Date: 20120928
  Serious: Yes (Other)
  Sender: FDA-Public Use
  Company Number: JP-2012-15636

PATIENT
  Age: 78 Year
  Sex: Male

DRUGS (1)
  1. SAMSCA [Suspect]
     Dosage: 1 MG MILLIGRAM(S), DAILY DOSE, ORAL
     Route: 048

REACTIONS (3)
  - DRUG INEFFECTIVE [None]
  - CONDITION AGGRAVATED [None]
  - PULMONARY OEDEMA [None]
